FAERS Safety Report 20740341 (Version 1)
Quarter: 2022Q2

REPORT INFORMATION
  Report Type: Report from Study
  Country: US (occurrence: US)
  Receive Date: 20220422
  Receipt Date: 20220422
  Transmission Date: 20220721
  Serious: Yes (Other)
  Sender: FDA-Public Use
  Company Number: US-BRISTOL-MYERS SQUIBB COMPANY-2022-025661

PATIENT
  Age: 72 Year
  Sex: Female
  Weight: 65.7 kg

DRUGS (1)
  1. REVLIMID [Suspect]
     Active Substance: LENALIDOMIDE
     Indication: Plasma cell myeloma
     Dosage: 10 MG/ 1 CAP, 28 / BTL.
     Route: 048
     Dates: start: 20171125

REACTIONS (2)
  - Gastric disorder [Unknown]
  - Anxiety [Unknown]
